FAERS Safety Report 7951432-6 (Version None)
Quarter: 2011Q4

REPORT INFORMATION
  Report Type: 
  Country: None (occurrence: None)
  Receive Date: 20111201
  Receipt Date: 20111122
  Transmission Date: 20120403
  Serious: Yes (Hospitalization)
  Sender: FDA-Public Use
  Company Number: US-BAYER-2011-043488

PATIENT
  Age: 35 Year
  Sex: Female
  Weight: 72.562 kg

DRUGS (3)
  1. CENTRUM [Concomitant]
     Indication: VITAMIN SUPPLEMENTATION
     Dosage: 1 DAILY
     Dates: start: 19900101
  2. YAZ [Suspect]
     Indication: CONTRACEPTION
     Dosage: UNK
     Dates: start: 20070830, end: 20100731
  3. YAZ [Suspect]
     Indication: ACNE

REACTIONS (4)
  - INJURY [None]
  - CHOLECYSTITIS CHRONIC [None]
  - PAIN [None]
  - GALLBLADDER DISORDER [None]
